FAERS Safety Report 5901351-1 (Version None)
Quarter: 2008Q3

REPORT INFORMATION
  Report Type: 
  Country: None (occurrence: None)
  Receive Date: 20080929
  Receipt Date: 20080919
  Transmission Date: 20090109
  Serious: Yes (Death, Other)
  Sender: FDA-Public Use
  Company Number: US-AMGEN-QUU303930

PATIENT
  Sex: Female
  Weight: 112.6 kg

DRUGS (20)
  1. ARANESP [Suspect]
     Indication: ANAEMIA OF MALIGNANT DISEASE
     Dates: start: 20071023, end: 20071218
  2. AREDIA [Concomitant]
     Dates: start: 20070511
  3. DIPHENHYDRAMINE HYDROCHLORIDE [Concomitant]
  4. MAGNESIUM SULFATE [Concomitant]
  5. DEXAMETHASONE [Concomitant]
  6. RANITIDINE [Concomitant]
  7. POTASSIUM CHLORIDE [Concomitant]
  8. ALOXI [Concomitant]
     Route: 040
  9. TYLENOL (CAPLET) [Concomitant]
     Route: 048
  10. CYCLOBENZAPRINE HCL [Concomitant]
     Route: 048
  11. METOPROLOL SUCCINATE [Concomitant]
     Route: 048
  12. ACIPHEX [Concomitant]
  13. DURAGESIC-100 [Concomitant]
     Route: 061
  14. ATIVAN [Concomitant]
  15. KYTRIL [Concomitant]
  16. COMPAZINE [Concomitant]
  17. CARAFATE [Concomitant]
  18. VICODIN [Concomitant]
  19. SODIUM CHLORIDE [Concomitant]
     Route: 042
  20. DEXTROSE 5% AND SODIUM CHLORIDE 0.45% IN PLASTIC CONTAINER [Concomitant]
     Route: 042

REACTIONS (4)
  - HYPERCALCAEMIA OF MALIGNANCY [None]
  - INTERNATIONAL NORMALISED RATIO INCREASED [None]
  - METASTASES TO BONE [None]
  - METASTATIC NEOPLASM [None]
